FAERS Safety Report 9524700 (Version 1)
Quarter: 2013Q3

REPORT INFORMATION
  Report Type: Report from Study
  Country: BR (occurrence: BR)
  Receive Date: 20130916
  Receipt Date: 20130916
  Transmission Date: 20140515
  Serious: Yes (Death, Other)
  Sender: FDA-Public Use
  Company Number: PHHY2013BR101842

PATIENT
  Sex: Male

DRUGS (1)
  1. DIOVAN [Suspect]
     Dosage: 1 DF, DAILY

REACTIONS (5)
  - Fall [Fatal]
  - Thrombosis [Unknown]
  - Parkinson^s disease [Unknown]
  - Injury [Unknown]
  - Cerebrovascular accident [Unknown]
